FAERS Safety Report 4478950-X (Version None)
Quarter: 2004Q4

REPORT INFORMATION
  Report Type: 
  Country: None (occurrence: None)
  Receive Date: 20040923
  Receipt Date: 20040803
  Transmission Date: 20050328
  Serious: No
  Sender: FDA-Public Use
  Company Number: 208207

PATIENT
  Age: 61 Year
  Sex: Male
  Weight: 68 kg

DRUGS (6)
  1. AVASTIN [Suspect]
     Indication: RECTAL CANCER
     Dosage: 320 MG, Q2W, INTRAVENOUS
     Route: 042
     Dates: start: 20040519, end: 20040614
  2. BUSPAR [Concomitant]
  3. PREVACID [Concomitant]
  4. FLOMAX [Concomitant]
  5. FERROUS SULFATE TAB [Concomitant]
  6. PERCOCET [Concomitant]

REACTIONS (1)
  - CONJUNCTIVAL HAEMORRHAGE [None]
